FAERS Safety Report 15681703 (Version 2)
Quarter: 2019Q1

REPORT INFORMATION
  Report Type: Spontaneous
  Country: US (occurrence: US)
  Receive Date: 20181203
  Receipt Date: 20190128
  Transmission Date: 20190417
  Serious: No
  Sender: FDA-Public Use
  Company Number: US-TEVA-2018-US-975788

PATIENT
  Sex: Male

DRUGS (1)
  1. ENOXAPARIN SODIUM INJECTION, USP [Suspect]
     Active Substance: ENOXAPARIN SODIUM
     Indication: THROMBOSIS PROPHYLAXIS
     Route: 065
     Dates: start: 20181109

REACTIONS (2)
  - Wrong technique in product usage process [Unknown]
  - Injection site swelling [Unknown]

NARRATIVE: CASE EVENT DATE: 20181109
